FAERS Safety Report 4471659-8 (Version None)
Quarter: 2004Q4

REPORT INFORMATION
  Report Type: 
  Country: None (occurrence: None)
  Receive Date: 20041012
  Receipt Date: 20041001
  Transmission Date: 20050328
  Serious: Yes (Life-Threatening, Hospitalization)
  Sender: FDA-Public Use
  Company Number: US-MERCK-0410USA00332

PATIENT
  Age: 55 Year
  Sex: Female

DRUGS (2)
  1. SOMA [Concomitant]
     Route: 065
  2. VIOXX [Suspect]
     Indication: PAIN
     Route: 048
     Dates: start: 20040811, end: 20040101

REACTIONS (1)
  - PULMONARY EMBOLISM [None]
